FAERS Safety Report 6781203-8 (Version None)
Quarter: 2010Q2

REPORT INFORMATION
  Report Type: 
  Country: None (occurrence: None)
  Receive Date: 20100621
  Receipt Date: 20100610
  Transmission Date: 20101027
  Serious: Yes (Hospitalization)
  Sender: FDA-Public Use
  Company Number: DE-PFIZER INC-2010056517

PATIENT
  Age: 67 Year
  Sex: Male

DRUGS (12)
  1. BLINDED *NO SUBJECT DRUG [Suspect]
     Indication: PROSTATE CANCER
     Dosage: 37.5 MG, 1X/DAY
     Route: 048
     Dates: start: 20100315, end: 20100504
  2. BLINDED *PLACEBO [Suspect]
     Indication: PROSTATE CANCER
     Dosage: 37.5 MG, 1X/DAY
     Route: 048
     Dates: start: 20100315, end: 20100504
  3. SUNITINIB MALATE [Suspect]
     Indication: PROSTATE CANCER
     Dosage: 37.5 MG, 1X/DAY
     Route: 048
     Dates: start: 20100315, end: 20100504
  4. *PREDNISONE [Suspect]
     Indication: PROSTATE CANCER
     Dosage: 5 MG, 2X/DAY
     Route: 048
     Dates: start: 20100315
  5. BISOPROLOL [Concomitant]
     Indication: HYPERTENSION
     Dosage: UNK
     Route: 048
     Dates: start: 20050101
  6. OMEPRAZOLE [Concomitant]
     Indication: GASTRITIS PROPHYLAXIS
     Dosage: UNK
     Dates: start: 20091201
  7. MOXONIDINE [Concomitant]
     Indication: HYPERTENSION
     Dosage: UNK
     Dates: start: 20050101
  8. SOLIFENACIN [Concomitant]
     Indication: BLADDER DISORDER
     Dosage: UNK
     Dates: start: 20100204
  9. NOVALGIN [Concomitant]
     Indication: SCIATICA
     Dosage: UNK
     Dates: start: 20100329
  10. FLUMETASON PIVALATE/TRICLOSAN [Concomitant]
     Indication: PALMAR-PLANTAR ERYTHRODYSAESTHESIA SYNDROME
     Dosage: UNK
     Dates: start: 20100406
  11. PROFACT - SLOW RELEASE [Concomitant]
     Indication: PROSTATE CANCER
     Dosage: UNK
     Dates: start: 20051201
  12. DONTISOLON [Concomitant]
     Indication: STOMATITIS
     Dosage: UNK
     Dates: start: 20100406

REACTIONS (2)
  - ASTHENIA [None]
  - CIRCULATORY COLLAPSE [None]
